FAERS Safety Report 7406874-4 (Version None)
Quarter: 2011Q2

REPORT INFORMATION
  Report Type: 
  Country: None (occurrence: None)
  Receive Date: 20110411
  Receipt Date: 20110329
  Transmission Date: 20111010
  Serious: Yes (Other)
  Sender: FDA-Public Use
  Company Number: CA-JNJFOC-20110400235

PATIENT
  Sex: Female
  Weight: 61.5 kg

DRUGS (8)
  1. REMICADE [Suspect]
     Indication: PRODUCT USED FOR UNKNOWN INDICATION
     Route: 042
  2. PREDNISONE [Concomitant]
     Indication: PREMEDICATION
     Dosage: 13:00, 7:00, 1:00 BEFOREHAND
     Route: 048
  3. MICARDIS [Concomitant]
  4. BENADRYL [Concomitant]
     Indication: PREMEDICATION
     Dosage: INTRAVENOUS OR AT HOME AS PER PATIENT
  5. CRESTOR [Concomitant]
  6. REMICADE [Suspect]
     Dosage: INFUSION #50
     Route: 042
  7. PURINETHOL [Concomitant]
     Route: 065
  8. PAXIL [Concomitant]

REACTIONS (7)
  - DYSPHONIA [None]
  - SWELLING FACE [None]
  - OXYGEN SATURATION DECREASED [None]
  - OCULAR HYPERAEMIA [None]
  - HOT FLUSH [None]
  - ADVERSE EVENT [None]
  - INFUSION RELATED REACTION [None]
